FAERS Safety Report 4567818-6 (Version None)
Quarter: 2005Q1

REPORT INFORMATION
  Report Type: 
  Country: None (occurrence: None)
  Receive Date: 20050202
  Receipt Date: 20041004
  Transmission Date: 20050727
  Serious: No
  Sender: FDA-Public Use
  Company Number: US-GLAXOSMITHKLINE-A0528416A

PATIENT
  Age: 76 Year
  Sex: Female

DRUGS (6)
  1. AVANDAMET [Suspect]
     Route: 048
  2. INSULIN [Concomitant]
  3. BETA BLOCKER [Concomitant]
  4. PAMELOR [Concomitant]
  5. SYNTHROID [Concomitant]
  6. ULTRASE MT20 [Concomitant]

REACTIONS (5)
  - BLOOD GLUCOSE INCREASED [None]
  - PLATELET COUNT DECREASED [None]
  - PRURITUS [None]
  - SKIN DISCOLOURATION [None]
  - SKIN DISORDER [None]
